FAERS Safety Report 16707911 (Version 3)
Quarter: 2020Q1

REPORT INFORMATION
  Report Type: Report from Study
  Country: US (occurrence: US)
  Receive Date: 20190815
  Receipt Date: 20200102
  Transmission Date: 20200409
  Serious: Yes (Life-Threatening, Hospitalization, Other)
  Sender: FDA-Public Use
  Company Number: US-GILEAD-2019-0420218

PATIENT
  Age: 69 Year
  Sex: Male
  Weight: 104 kg

DRUGS (38)
  1. FLUDARABINE [Suspect]
     Active Substance: FLUDARABINE PHOSPHATE
     Dosage: 30
     Route: 042
     Dates: start: 20190718, end: 20190718
  2. FUROSEMIDE. [Concomitant]
     Active Substance: FUROSEMIDE
     Dosage: 20,MG,DAILY
     Route: 048
     Dates: start: 20190405
  3. LOSARTAN. [Concomitant]
     Active Substance: LOSARTAN
     Dosage: 25,MG,DAILY
     Route: 048
     Dates: start: 20190405
  4. MULTIVITAMINS [VITAMINS NOS] [Concomitant]
     Active Substance: VITAMINS
     Dosage: 1,OTHER,DAILY
     Route: 048
     Dates: start: 20190611
  5. CALCIUM GLUCONATE. [Concomitant]
     Active Substance: CALCIUM GLUCONATE
     Dosage: 9.4,OTHER,ONCE
     Route: 042
     Dates: start: 20190625, end: 20190625
  6. GRANISETRON [Concomitant]
     Active Substance: GRANISETRON
     Dosage: 2,MG,DAILY
     Route: 048
     Dates: start: 20190717, end: 20190719
  7. ACETAMINOPHEN. [Concomitant]
     Active Substance: ACETAMINOPHEN
     Dosage: 1000,MG,DAILY
     Route: 048
     Dates: start: 20190811, end: 20190811
  8. ENOXAPARIN [Concomitant]
     Active Substance: ENOXAPARIN
     Dosage: 40,MG,DAILY
     Route: 058
     Dates: start: 20190722, end: 20190728
  9. ENOXAPARIN [Concomitant]
     Active Substance: ENOXAPARIN
     Dosage: 40,MG,DAILY
     Route: 058
     Dates: start: 20190811, end: 20190812
  10. FLUDARABINE [Suspect]
     Active Substance: FLUDARABINE PHOSPHATE
     Indication: BONE MARROW CONDITIONING REGIMEN
     Dosage: 300
     Route: 042
     Dates: start: 20190717, end: 20190717
  11. INSULIN LISPRO [Concomitant]
     Active Substance: INSULIN LISPRO
     Dosage: 10,IU,TWICE DAILY
     Route: 058
     Dates: start: 20190611
  12. CYCLOPHOSPHAMIDE. [Suspect]
     Active Substance: CYCLOPHOSPHAMIDE
     Indication: BONE MARROW CONDITIONING REGIMEN
     Dosage: 500
     Route: 042
     Dates: start: 20190717, end: 20190717
  13. CYCLOPHOSPHAMIDE. [Suspect]
     Active Substance: CYCLOPHOSPHAMIDE
     Dosage: 500
     Route: 042
     Dates: start: 20190719, end: 20190719
  14. SODIUM CHLORIDE. [Concomitant]
     Active Substance: SODIUM CHLORIDE
     Dosage: 30,ML,AS NECESSARY
     Route: 042
     Dates: start: 20190625, end: 20190625
  15. SODIUM CHLORIDE. [Concomitant]
     Active Substance: SODIUM CHLORIDE
     Dosage: 2000,ML,DAILY
     Route: 042
     Dates: start: 20190717, end: 20190719
  16. CALCIUM GLUCONATE. [Concomitant]
     Active Substance: CALCIUM GLUCONATE
     Dosage: 9.4,OTHER,ONCE
     Route: 042
     Dates: start: 20190728, end: 20190728
  17. ACYCLOVIR [ACICLOVIR] [Concomitant]
     Active Substance: ACYCLOVIR
     Dosage: 400,MG,TWICE DAILY
     Route: 048
     Dates: start: 20190622
  18. DIPHENHYDRAMINE. [Concomitant]
     Active Substance: DIPHENHYDRAMINE
     Dosage: 12.5,MG,DAILY
     Route: 042
     Dates: start: 20190722, end: 20190722
  19. FLUDARABINE [Suspect]
     Active Substance: FLUDARABINE PHOSPHATE
     Dosage: 30
     Route: 042
     Dates: start: 20190719, end: 20190719
  20. LOVASTATIN. [Concomitant]
     Active Substance: LOVASTATIN
     Dosage: 20,MG,DAILY
     Route: 048
     Dates: start: 20190405
  21. GLIMEPIRIDE. [Concomitant]
     Active Substance: GLIMEPIRIDE
     Dosage: 2,MG,DAILY
     Route: 048
     Dates: start: 20190611
  22. SODIUM CHLORIDE. [Concomitant]
     Active Substance: SODIUM CHLORIDE
     Dosage: 0-500,ML,AS NECESSARY
     Route: 042
     Dates: start: 20190624, end: 20190624
  23. FENTANYL. [Concomitant]
     Active Substance: FENTANYL
     Dosage: 50,UG,ONCE
     Route: 042
     Dates: start: 20190624, end: 20190624
  24. ALLOPURINOL. [Concomitant]
     Active Substance: ALLOPURINOL
     Dosage: 300,MG,DAILY
     Route: 048
     Dates: start: 20190722, end: 20190731
  25. CYCLOPHOSPHAMIDE. [Suspect]
     Active Substance: CYCLOPHOSPHAMIDE
     Dosage: 500
     Route: 042
     Dates: start: 20190718, end: 20190718
  26. METFORMIN [Concomitant]
     Active Substance: METFORMIN HYDROCHLORIDE
     Dosage: 1000,MG,TWICE DAILY
     Route: 048
     Dates: start: 20190611
  27. SODIUM CHLORIDE. [Concomitant]
     Active Substance: SODIUM CHLORIDE
     Dosage: 1000,ML,ONCE
     Route: 042
     Dates: start: 20190724, end: 20190724
  28. PROMETHAZINE [Concomitant]
     Active Substance: PROMETHAZINE HYDROCHLORIDE
     Dosage: 25,MG,DAILY
     Route: 048
     Dates: start: 20190717, end: 20190719
  29. ACETAMINOPHEN. [Concomitant]
     Active Substance: ACETAMINOPHEN
     Dosage: 650,MG,DAILY
     Route: 048
     Dates: start: 20190722, end: 20190722
  30. ACETAMINOPHEN. [Concomitant]
     Active Substance: ACETAMINOPHEN
     Dosage: 650,MG,OTHER
     Route: 048
     Dates: start: 20190723, end: 20190723
  31. ACYCLOVIR [ACICLOVIR] [Concomitant]
     Active Substance: ACYCLOVIR
     Dosage: 400,MG,TWICE DAILY
     Route: 048
     Dates: start: 20190811, end: 20190819
  32. PANTOPRAZOLE [Concomitant]
     Active Substance: PANTOPRAZOLE
     Dosage: 40,MG,DAILY
     Route: 048
     Dates: start: 20190722
  33. METOPROLOL. [Concomitant]
     Active Substance: METOPROLOL
     Dosage: 25,MG,DAILY
     Route: 048
     Dates: start: 20190405
  34. METOPROLOL. [Concomitant]
     Active Substance: METOPROLOL
     Dosage: 25,MG,DAILY
     Route: 048
     Dates: start: 20190405, end: 20190723
  35. ASPIRIN 81 [Concomitant]
     Active Substance: ASPIRIN
     Dosage: 81,MG,DAILY
     Route: 048
     Dates: start: 20190405
  36. SODIUM CHLORIDE. [Concomitant]
     Active Substance: SODIUM CHLORIDE
     Dosage: 1500,ML,ONCE
     Route: 042
     Dates: start: 20190723, end: 20190723
  37. AXICABTAGENE CILOLEUCEL [Suspect]
     Active Substance: AXICABTAGENE CILOLEUCEL
     Indication: DIFFUSE LARGE B-CELL LYMPHOMA
     Dosage: 68
     Route: 042
     Dates: start: 20190722, end: 20190722
  38. MIDAZOLAM HYDROCHLORIDE. [Concomitant]
     Active Substance: MIDAZOLAM HYDROCHLORIDE
     Dosage: 1,MG,ONCE
     Route: 042
     Dates: start: 20190624, end: 20190624

REACTIONS (6)
  - Hypotension [Recovered/Resolved]
  - Sepsis [Recovered/Resolved]
  - Hypotension [Recovered/Resolved]
  - Pyrexia [Recovered/Resolved]
  - Neutropenia [Recovered/Resolved]
  - Cytokine release syndrome [Unknown]

NARRATIVE: CASE EVENT DATE: 20190723
